FAERS Safety Report 8890846 (Version 2)
Quarter: 2014Q2

REPORT INFORMATION
  Report Type: Report from Study
  Country: IL (occurrence: IL)
  Receive Date: 20121106
  Receipt Date: 20140528
  Transmission Date: 20141212
  Serious: Yes (Hospitalization)
  Sender: FDA-Public Use
  Company Number: IL-VERTEX PHARMACEUTICAL INC.-000000000000001301

PATIENT
  Age: 58 Year
  Sex: Male
  Weight: 85 kg

DRUGS (12)
  1. VX-950 (TELAPREVIR) [Suspect]
     Indication: HEPATITIS C
     Dosage: DOSAGE FORM: TABLET
     Route: 048
     Dates: start: 20120703, end: 20120717
  2. PEGINTERFERON ALPHA 2-A [Suspect]
     Indication: HEPATITIS C
     Dosage: 180 MG, QW
     Dates: start: 20120703, end: 20120717
  3. COPEGUS [Suspect]
     Indication: HEPATITIS C
     Route: 048
     Dates: start: 20120703, end: 20120717
  4. METFORMIN [Concomitant]
     Indication: HEPATIC STEATOSIS
     Dosage: 850 MG, QD
     Route: 048
  5. URSODEOXYCHOLIC ACID [Concomitant]
     Indication: HEPATIC STEATOSIS
     Dosage: 250 MG, BID
     Route: 048
     Dates: end: 20120703
  6. COLCHICINE [Concomitant]
     Indication: HEPATIC STEATOSIS
     Dosage: 0.5 MG, BID
     Route: 048
     Dates: end: 20120703
  7. ATENOLOL [Concomitant]
     Indication: HYPERTENSION
     Dosage: 25 MG, BID
     Route: 048
  8. LOSARTAN POTASSIUM [Concomitant]
     Indication: HYPERTENSION
     Dosage: 50 MG, BID
     Route: 048
  9. AMLODIPINE MALEATE [Concomitant]
     Indication: HYPERTENSION
     Dosage: 10 MG, QD
     Route: 048
  10. DOXAZOSIN [Concomitant]
     Indication: HYPERTENSION
     Dosage: 2 MG, QD
     Route: 048
  11. COLECALCIFEROL [Concomitant]
     Indication: HEPATIC STEATOSIS
     Dosage: 800 DROPS
  12. PROCTOZORIN [Concomitant]
     Indication: ANAL PRURITUS
     Route: 061
     Dates: start: 20120711

REACTIONS (2)
  - Renal failure acute [Recovered/Resolved]
  - Pancreatitis acute [Recovered/Resolved]
